FAERS Safety Report 5452121-2 (Version None)
Quarter: 2007Q3

REPORT INFORMATION
  Report Type: 
  Country: None (occurrence: None)
  Receive Date: 20070912
  Receipt Date: 20061005
  Transmission Date: 20080115
  Serious: Yes (Other)
  Sender: FDA-Public Use
  Company Number: 2006VX001805

PATIENT
  Age: 42 Year
  Sex: Male
  Weight: 69.4003 kg

DRUGS (6)
  1. INTERFERON ALFACON-1 [Suspect]
     Indication: HEPATITIS C
     Dosage: 15 UG; QD; SC
     Route: 058
     Dates: start: 20060327
  2. SONATA [Concomitant]
  3. WELLBUTRIN [Concomitant]
  4. CAMPRAL [Concomitant]
  5. XANAX [Concomitant]
  6. RIBAVIRIN [Concomitant]

REACTIONS (11)
  - ALOPECIA [None]
  - AMNESIA [None]
  - ANXIETY [None]
  - CHILLS [None]
  - CORONARY ARTERY OCCLUSION [None]
  - DEPRESSED MOOD [None]
  - DEPRESSION [None]
  - HYPERHIDROSIS [None]
  - INSOMNIA [None]
  - MENTAL STATUS CHANGES [None]
  - PYREXIA [None]
